FAERS Safety Report 7292924-5 (Version None)
Quarter: 2011Q1

REPORT INFORMATION
  Report Type: 
  Country: None (occurrence: None)
  Receive Date: 20110209
  Receipt Date: 20110209
  Transmission Date: 20110831
  Serious: Yes (Hospitalization)
  Sender: FDA-Public Use
  Company Number: None

PATIENT
  Age: 35 Year
  Sex: Female
  Weight: 95.709 kg

DRUGS (2)
  1. DOCETAXEL [Suspect]
     Indication: BREAST CANCER
     Dosage: 100 MG/M2, IV Q 3 WKS
     Route: 042
     Dates: start: 20101201
  2. DASATINIB, 50 MG TABLETS, (BRISTOL MYERS SQUIBB) [Suspect]
     Indication: BREAST CANCER
     Dosage: 100 MG PO QD
     Route: 048
     Dates: start: 20101104, end: 20101123

REACTIONS (8)
  - PYREXIA [None]
  - RASH [None]
  - MYALGIA [None]
  - BACTERIAL INFECTION [None]
  - MUCOSAL INFLAMMATION [None]
  - DYSURIA [None]
  - FEBRILE NEUTROPENIA [None]
  - BLOOD CULTURE POSITIVE [None]
